FAERS Safety Report 6423725-5 (Version None)
Quarter: 2009Q4

REPORT INFORMATION
  Report Type: 
  Country: None (occurrence: None)
  Receive Date: 20091028
  Receipt Date: 20091012
  Transmission Date: 20100525
  Serious: Yes (Hospitalization)
  Sender: FDA-Public Use
  Company Number: DEP_00300_2009

PATIENT
  Age: 77 Year
  Sex: Female

DRUGS (3)
  1. METFORMIN HCL [Suspect]
     Indication: TYPE 2 DIABETES MELLITUS
     Dosage: (3 G)
  2. PERINDOPRIL [Concomitant]
  3. SIMVASTATIN [Concomitant]

REACTIONS (20)
  - ABDOMINAL PAIN [None]
  - BLOOD CREATINE INCREASED [None]
  - BLOOD GLUCOSE INCREASED [None]
  - BLOOD LACTATE DEHYDROGENASE INCREASED [None]
  - BLOOD PH DECREASED [None]
  - BLOOD UREA INCREASED [None]
  - CEREBROVASCULAR ACCIDENT [None]
  - CONTINUOUS HAEMODIAFILTRATION [None]
  - DEHYDRATION [None]
  - HYPERKALAEMIA [None]
  - LACTIC ACIDOSIS [None]
  - LEUKOCYTOSIS [None]
  - METABOLIC ACIDOSIS [None]
  - PCO2 DECREASED [None]
  - PLATELET COUNT INCREASED [None]
  - PO2 INCREASED [None]
  - PSYCHOMOTOR HYPERACTIVITY [None]
  - RENAL FAILURE ACUTE [None]
  - STAPHYLOCOCCAL INFECTION [None]
  - VOMITING [None]
